FAERS Safety Report 19270345 (Version 3)
Quarter: 2022Q2

REPORT INFORMATION
  Report Type: Spontaneous
  Country: US (occurrence: US)
  Receive Date: 20210518
  Receipt Date: 20220411
  Transmission Date: 20220721
  Serious: Yes (Other)
  Sender: FDA-Public Use
  Company Number: US-PFIZER INC-2021504023

PATIENT
  Age: 81 Year
  Sex: Female
  Weight: 95.25 kg

DRUGS (1)
  1. XELJANZ XR [Suspect]
     Active Substance: TOFACITINIB CITRATE
     Dosage: 11 MG, DAILY

REACTIONS (10)
  - Wrist fracture [Unknown]
  - Expired product administered [Unknown]
  - Musculoskeletal stiffness [Unknown]
  - Joint stiffness [Unknown]
  - Pain [Unknown]
  - Pain in extremity [Unknown]
  - Limb discomfort [Unknown]
  - Paraesthesia [Unknown]
  - Gait disturbance [Unknown]
  - Memory impairment [Unknown]
